FAERS Safety Report 21306769 (Version 1)
Quarter: 2022Q3

REPORT INFORMATION
  Report Type: Spontaneous
  Country: SE (occurrence: SE)
  Receive Date: 20220908
  Receipt Date: 20220908
  Transmission Date: 20221027
  Serious: Yes (Hospitalization)
  Sender: FDA-Public Use
  Company Number: SE-MYLANLABS-2022M1091849

PATIENT
  Age: 15 Year
  Sex: Female

DRUGS (19)
  1. RISPERIDONE [Suspect]
     Active Substance: RISPERIDONE
     Indication: Anxiety
     Dosage: UNK, INITIATED AT THE AGE OF 13 YEARS
     Route: 065
  2. RISPERIDONE [Suspect]
     Active Substance: RISPERIDONE
     Indication: Hallucination
  3. RISPERIDONE [Suspect]
     Active Substance: RISPERIDONE
     Indication: Neurodegenerative disorder
  4. RISPERIDONE [Suspect]
     Active Substance: RISPERIDONE
     Indication: Hereditary disorder
  5. OLANZAPINE [Suspect]
     Active Substance: OLANZAPINE
     Indication: Anxiety
     Dosage: 2.5 MILLIGRAM, QD
     Route: 065
  6. OLANZAPINE [Suspect]
     Active Substance: OLANZAPINE
     Indication: Hallucination
     Dosage: 5 MILLIGRAM, QD
     Route: 065
  7. OLANZAPINE [Suspect]
     Active Substance: OLANZAPINE
     Indication: Neurodegenerative disorder
     Dosage: 2.5 MILLIGRAM, QD (REDUCED BACK TO 2.5 MG AND THEN DISCONTINUED)
     Route: 065
  8. OLANZAPINE [Suspect]
     Active Substance: OLANZAPINE
     Indication: Hereditary disorder
  9. QUETIAPINE [Suspect]
     Active Substance: QUETIAPINE
     Indication: Anxiety
     Dosage: 25 MILLIGRAM, QD
     Route: 065
  10. QUETIAPINE [Suspect]
     Active Substance: QUETIAPINE
     Indication: Hallucination
     Dosage: 75 MILLIGRAM, QD
     Route: 065
  11. QUETIAPINE [Suspect]
     Active Substance: QUETIAPINE
     Indication: Neurodegenerative disorder
  12. QUETIAPINE [Suspect]
     Active Substance: QUETIAPINE
     Indication: Hereditary disorder
  13. LORAZEPAM [Concomitant]
     Active Substance: LORAZEPAM
     Indication: Rhabdomyolysis
     Dosage: UNK
     Route: 065
  14. LORAZEPAM [Concomitant]
     Active Substance: LORAZEPAM
     Indication: Neuroleptic malignant syndrome
  15. CLONIDINE [Concomitant]
     Active Substance: CLONIDINE
     Indication: Rhabdomyolysis
     Dosage: UNK
     Route: 065
  16. CLONIDINE [Concomitant]
     Active Substance: CLONIDINE
     Indication: Neuroleptic malignant syndrome
  17. LEVETIRACETAM [Concomitant]
     Active Substance: LEVETIRACETAM
     Indication: Epilepsy
     Dosage: UNK, INITIATED AT THE AGE OF 12 YEARS
     Route: 065
  18. LEVETIRACETAM [Concomitant]
     Active Substance: LEVETIRACETAM
     Indication: Neurodegenerative disorder
  19. LEVETIRACETAM [Concomitant]
     Active Substance: LEVETIRACETAM
     Indication: Hereditary disorder

REACTIONS (4)
  - Neuromyopathy [Recovered/Resolved]
  - Hyperthermia [Recovered/Resolved]
  - Rhabdomyolysis [Recovered/Resolved]
  - Off label use [Unknown]
